FAERS Safety Report 23930896 (Version 3)
Quarter: 2024Q4

REPORT INFORMATION
  Report Type: Spontaneous
  Country: JP (occurrence: JP)
  Receive Date: 20240603
  Receipt Date: 20241101
  Transmission Date: 20250114
  Serious: Yes (Death, Other)
  Sender: MERCK
  Company Number: JP-MSD-M2024-20078

PATIENT
  Age: 18 Year
  Sex: Male

DRUGS (2)
  1. CANCIDAS [Suspect]
     Active Substance: CASPOFUNGIN ACETATE
     Indication: Systemic mycosis
     Dosage: UNK
     Route: 041
  2. VORICONAZOLE [Concomitant]
     Active Substance: VORICONAZOLE
     Indication: Systemic mycosis
     Dosage: UNK
     Route: 065

REACTIONS (2)
  - Systemic mycosis [Fatal]
  - Pulmonary mucormycosis [Fatal]
